FAERS Safety Report 8620329-0 (Version None)
Quarter: 2012Q3

REPORT INFORMATION
  Report Type: 
  Country: None (occurrence: None)
  Receive Date: 20120824
  Receipt Date: 20120816
  Transmission Date: 20120928
  Serious: Yes (Hospitalization, Disabling, Other)
  Sender: FDA-Public Use
  Company Number: US-009507513-1203USA03298

PATIENT

DRUGS (13)
  1. FOSAMAX PLUS D [Suspect]
     Indication: BONE LOSS
     Dosage: 70/2800 MG, UNK
     Route: 048
     Dates: end: 20100317
  2. OMEGA-3-ACID ETHYL ESTERS [Concomitant]
     Dosage: 1000 MG, UNK
     Route: 048
  3. FOSAMAX [Suspect]
     Indication: BONE LOSS
     Dosage: 70 MG, QW
     Route: 048
     Dates: start: 19990101, end: 20070701
  4. DETROL [Concomitant]
     Dosage: 4 MG, UNK
     Route: 048
  5. NASONEX [Concomitant]
     Dosage: 2 DF, QD
     Route: 045
  6. CIMETIDINE [Concomitant]
     Dosage: 40 MG, UNK
     Route: 048
  7. ACTOS [Concomitant]
     Indication: DIABETES MELLITUS
     Dosage: 45 MG, UNK
     Dates: start: 20020101, end: 20120301
  8. ASCORBIC ACID [Concomitant]
     Dosage: 500 MG, UNK
     Route: 048
  9. CALCIUM (UNSPECIFIED) (+) PHYTONADIONE (+) VITAMIN D (UNSPECIFIED) [Concomitant]
     Dosage: 500 MG, UNK
     Route: 048
  10. METFORMIN HCL [Concomitant]
     Indication: DIABETES MELLITUS
     Dosage: 1000 MG, UNK
     Dates: start: 19970101
  11. AMITRIPTYLINE HCL [Concomitant]
     Indication: STRESS
     Dosage: UNK
     Dates: start: 19820101
  12. PRANDIN (DEFLAZACORT) [Concomitant]
     Indication: DIABETES MELLITUS
     Dosage: UNK
     Dates: start: 20020101
  13. MULTI-VITAMINS [Concomitant]
     Route: 048

REACTIONS (28)
  - OSTEOPOROSIS [None]
  - LOW TURNOVER OSTEOPATHY [None]
  - BLADDER DISORDER [None]
  - ECZEMA NUMMULAR [None]
  - TOOTH EXTRACTION [None]
  - POST-TRAUMATIC HEADACHE [None]
  - EXCORIATION [None]
  - FRACTURE [None]
  - SCOLIOSIS [None]
  - VARICOSE VEIN [None]
  - DECREASED APPETITE [None]
  - ARTHRALGIA [None]
  - OPEN REDUCTION OF FRACTURE [None]
  - SKIN INFECTION [None]
  - CELLULITIS [None]
  - POLYP [None]
  - CATARACT [None]
  - FALL [None]
  - FEMUR FRACTURE [None]
  - DIVERTICULUM [None]
  - ECZEMA [None]
  - DERMATITIS CONTACT [None]
  - STASIS DERMATITIS [None]
  - HYPERTENSION [None]
  - HYPERSENSITIVITY [None]
  - HAEMORRHOIDS [None]
  - STRESS FRACTURE [None]
  - BLOOD CHOLESTEROL INCREASED [None]
